FAERS Safety Report 7959843-X (Version None)
Quarter: 2011Q4

REPORT INFORMATION
  Report Type: 
  Country: None (occurrence: None)
  Receive Date: 20111206
  Receipt Date: 20111128
  Transmission Date: 20120403
  Serious: Yes (Hospitalization)
  Sender: FDA-Public Use
  Company Number: FR-PFIZER INC-2011196546

PATIENT
  Age: 90 Year
  Sex: Female

DRUGS (8)
  1. FERROUS FUMARATE [Suspect]
     Dosage: 160 MG, 1X/DAY
     Route: 048
     Dates: start: 20110707, end: 20110801
  2. ASPEGIC 325 [Concomitant]
     Route: 065
  3. CORDARONE [Concomitant]
     Route: 065
  4. NICARDIPINE HCL [Concomitant]
     Route: 065
  5. PRAXILENE [Concomitant]
     Route: 065
  6. PANTOPRAZOLE [Suspect]
     Dosage: 20 MG, 1X/DAY
     Route: 048
     Dates: start: 20110707, end: 20110801
  7. DEBRIDAT [Concomitant]
     Route: 065
  8. OLMESARTAN MEDOXOMIL AND HYDROCHLOROTHIZIDE [Suspect]
     Dosage: 20/12.5 MG, 1X/DAY
     Route: 048
     Dates: end: 20110801

REACTIONS (1)
  - LEUKOCYTOCLASTIC VASCULITIS [None]
